FAERS Safety Report 22058767 (Version 2)
Quarter: 2023Q1

REPORT INFORMATION
  Report Type: Spontaneous
  Country: US (occurrence: None)
  Receive Date: 20230303
  Receipt Date: 20230331
  Transmission Date: 20230418
  Serious: No
  Sender: FDA-Public Use
  Company Number: 2023A044825

PATIENT
  Age: 642 Month
  Sex: Female

DRUGS (1)
  1. PULMICORT FLEXHALER [Suspect]
     Active Substance: BUDESONIDE
     Dosage: DOSE AND FREQUENCY UNKNOWN
     Route: 055
     Dates: end: 202302

REACTIONS (5)
  - Illness [Unknown]
  - Device use issue [Recovered/Resolved]
  - Drug ineffective [Unknown]
  - Device malfunction [Unknown]
  - Product label issue [Unknown]

NARRATIVE: CASE EVENT DATE: 20230201
